FAERS Safety Report 4563547-3 (Version None)
Quarter: 2005Q1

REPORT INFORMATION
  Report Type: 
  Country: None (occurrence: None)
  Receive Date: 20050128
  Receipt Date: 20040913
  Transmission Date: 20050727
  Serious: No
  Sender: FDA-Public Use
  Company Number: S2004US11201

PATIENT
  Sex: Female

DRUGS (1)
  1. WELLBUTRIN [Suspect]
     Indication: DRUG USE FOR UNKNOWN INDICATION
     Route: 048

REACTIONS (3)
  - BLOOD PRESSURE INCREASED [None]
  - FEELING ABNORMAL [None]
  - TREMOR [None]
